FAERS Safety Report 10350263 (Version 1)
Quarter: 2014Q3

REPORT INFORMATION
  Report Type: Spontaneous
  Country: US (occurrence: None)
  Receive Date: 20140728
  Receipt Date: 20140728
  Transmission Date: 20150326
  Serious: Yes (Other)
  Sender: FDA-Public Use
  Company Number: None

PATIENT
  Age: 51 Year
  Sex: Female
  Weight: 63.05 kg

DRUGS (1)
  1. TOBRAMYCIN AND DEXAMETHASONE [Suspect]
     Active Substance: DEXAMETHASONE\TOBRAMYCIN
     Indication: CONJUNCTIVITIS
     Dosage: 1 DROP  FOUR TIMES DAILY  INTO THE EYE
     Route: 047
     Dates: start: 20140721, end: 20140721

REACTIONS (3)
  - Tinnitus [None]
  - Deafness transitory [None]
  - Hypoacusis [None]

NARRATIVE: CASE EVENT DATE: 20140721
